FAERS Safety Report 8473015 (Version 6)
Quarter: 2013Q3

REPORT INFORMATION
  Report Type: Spontaneous
  Country: GB (occurrence: GB)
  Receive Date: 20120322
  Receipt Date: 20130823
  Transmission Date: 20140515
  Serious: Yes (Other)
  Sender: FDA-Public Use
  Company Number: PHFR2012GB001585

PATIENT
  Age: 46 Year
  Sex: Female

DRUGS (5)
  1. CLOZARIL [Suspect]
     Indication: SCHIZOPHRENIA
     Dosage: 525 MG, DAILY
     Route: 048
     Dates: start: 19910801
  2. CLOZARIL [Suspect]
     Dosage: UNK
     Dates: start: 20010701
  3. LAMOTRIGINE [Concomitant]
     Indication: AFFECTIVE DISORDER
     Dosage: 200 MG, DAILY
     Route: 048
  4. SERTRALINE [Concomitant]
     Indication: DEPRESSION
     Dosage: 50 MG, DAILY
     Route: 048
  5. LORAZEPAM [Concomitant]
     Indication: ANXIETY
     Dosage: 2 MG AT EVENING, DAILY
     Route: 048

REACTIONS (3)
  - Lymphocyte count increased [Recovered/Resolved]
  - Neutrophil count increased [Recovered/Resolved]
  - White blood cell count increased [Recovered/Resolved]
